FAERS Safety Report 8458450-2 (Version None)
Quarter: 2012Q2

REPORT INFORMATION
  Report Type: 
  Country: None (occurrence: None)
  Receive Date: 20120622
  Receipt Date: 20120613
  Transmission Date: 20120825
  Serious: Yes (Disabling)
  Sender: FDA-Public Use
  Company Number: JP-BRISTOL-MYERS SQUIBB COMPANY-16576548

PATIENT
  Age: 73 Year
  Sex: Female

DRUGS (1)
  1. MAXIPIME [Suspect]
     Indication: FEBRILE NEUTROPENIA
     Dosage: MAXIPIME 1G
     Route: 042
     Dates: start: 20120305, end: 20120310

REACTIONS (1)
  - ALTERED STATE OF CONSCIOUSNESS [None]
